FAERS Safety Report 6070910-0 (Version None)
Quarter: 2009Q1

REPORT INFORMATION
  Report Type: 
  Country: None (occurrence: None)
  Receive Date: 20090209
  Receipt Date: 20090129
  Transmission Date: 20090719
  Serious: Yes (Other)
  Sender: FDA-Public Use
  Company Number: DE-JNJFOC-20090107335

PATIENT
  Sex: Male

DRUGS (1)
  1. REMICADE [Suspect]
     Indication: MUSCULOSKELETAL PAIN
     Dosage: THERAPY DURATION 1 YEAR
     Route: 042

REACTIONS (3)
  - ANTINUCLEAR ANTIBODY INCREASED [None]
  - DRUG INEFFECTIVE [None]
  - SURGERY [None]
